FAERS Safety Report 13838322 (Version 1)
Quarter: 2017Q3

REPORT INFORMATION
  Report Type: Spontaneous
  Country: US (occurrence: US)
  Receive Date: 20170807
  Receipt Date: 20170807
  Transmission Date: 20171127
  Serious: No
  Sender: FDA-Public Use
  Company Number: US-TAKEDA-2017TUS016201

PATIENT
  Sex: Male
  Weight: 81.63 kg

DRUGS (5)
  1. CLARINEX                           /01202601/ [Concomitant]
     Active Substance: LORATADINE\PSEUDOEPHEDRINE SULFATE
     Indication: HYPERSENSITIVITY
     Dosage: UNK UNK, QD
     Route: 048
  2. ROZEREM [Suspect]
     Active Substance: RAMELTEON
     Dosage: 8 MG, QD
     Route: 048
  3. HUMIRA [Concomitant]
     Active Substance: ADALIMUMAB
     Indication: CROHN^S DISEASE
     Dosage: UNK UNK, Q2WEEKS
  4. ROZEREM [Suspect]
     Active Substance: RAMELTEON
     Indication: INITIAL INSOMNIA
     Dosage: 8 MG, QD
     Route: 048
     Dates: start: 2015
  5. CLOMID [Concomitant]
     Active Substance: CLOMIPHENE CITRATE
     Indication: HYPOGONADISM
     Dosage: UNK
     Route: 048

REACTIONS (1)
  - Therapeutic response decreased [Unknown]
